FAERS Safety Report 10509500 (Version 3)
Quarter: 2014Q4

REPORT INFORMATION
  Report Type: Report from Study
  Country: AR (occurrence: AR)
  Receive Date: 20141009
  Receipt Date: 20141208
  Transmission Date: 20150528
  Serious: Yes (Death, Hospitalization, Other)
  Sender: FDA-Public Use
  Company Number: PHHY2014AR131339

PATIENT
  Age: 17 Year
  Sex: Male

DRUGS (2)
  1. EXJADE [Suspect]
     Active Substance: DEFERASIROX
     Indication: IRON OVERLOAD
     Dosage: 4 DF, QD
     Route: 048
     Dates: start: 20010101
  2. EXJADE [Suspect]
     Active Substance: DEFERASIROX
     Dosage: UNK
     Route: 048
     Dates: start: 2012

REACTIONS (5)
  - Fatigue [Unknown]
  - Pancreatic disorder [Recovered/Resolved]
  - Death [Fatal]
  - Seizure [Recovered/Resolved]
  - General physical health deterioration [Unknown]

NARRATIVE: CASE EVENT DATE: 20140601
